FAERS Safety Report 9887721 (Version 1)
Quarter: 2014Q1

REPORT INFORMATION
  Report Type: Spontaneous
  Country: US (occurrence: None)
  Receive Date: 20140206
  Receipt Date: 20140206
  Transmission Date: 20141002
  Serious: Yes (Hospitalization)
  Sender: FDA-Public Use
  Company Number: US-ZYDUS-002488

PATIENT
  Age: 44 Year
  Sex: Male

DRUGS (2)
  1. QUETIAPINE (QUETIAPINE) [Suspect]
     Indication: AFFECTIVE DISORDER
  2. TAMSULOSIN (TAMSULOSIN) [Suspect]

REACTIONS (2)
  - Priapism [None]
  - Drug interaction [None]
